FAERS Safety Report 13425804 (Version 1)
Quarter: 2017Q2

REPORT INFORMATION
  Report Type: Spontaneous
  Country: US (occurrence: US)
  Receive Date: 20170410
  Receipt Date: 20170410
  Transmission Date: 20170830
  Serious: Yes (Other)
  Sender: FDA-Public Use
  Company Number: None

PATIENT
  Age: 42 Year
  Sex: Female
  Weight: 86.26 kg

DRUGS (3)
  1. LIDODERM [Concomitant]
     Active Substance: LIDOCAINE
  2. LYRICA [Concomitant]
     Active Substance: PREGABALIN
  3. GABAPENTIN. [Suspect]
     Active Substance: GABAPENTIN
     Indication: NEURALGIA
     Route: 048
     Dates: start: 20150824, end: 20161020

REACTIONS (3)
  - Disorientation [None]
  - Treatment failure [None]
  - Dizziness [None]

NARRATIVE: CASE EVENT DATE: 20161020
